FAERS Safety Report 13441049 (Version 2)
Quarter: 2017Q2

REPORT INFORMATION
  Report Type: Spontaneous
  Country: US (occurrence: US)
  Receive Date: 20170413
  Receipt Date: 20170428
  Transmission Date: 20170830
  Serious: Yes (Other)
  Sender: FDA-Public Use
  Company Number: US-TORRENT-00002668

PATIENT
  Age: 35 Year
  Sex: Male

DRUGS (2)
  1. BUPROPION. [Suspect]
     Active Substance: BUPROPION
  2. MIRTAZEPINE [Concomitant]
     Active Substance: MIRTAZAPINE

REACTIONS (1)
  - Condition aggravated [Recovered/Resolved]
